FAERS Safety Report 4682065-5 (Version None)
Quarter: 2005Q2

REPORT INFORMATION
  Report Type: 
  Country: None (occurrence: None)
  Receive Date: 20050602
  Receipt Date: 20041005
  Transmission Date: 20051028
  Serious: Yes (Disabling)
  Sender: FDA-Public Use
  Company Number: 2004US000786

PATIENT
  Age: 62 Year
  Sex: Female
  Weight: 71.7 kg

DRUGS (4)
  1. PROGRAF [Suspect]
     Indication: RENAL TRANSPLANT
     Dosage: ORAL
     Route: 048
  2. CELLCEPT [Concomitant]
  3. PROCARDIA [Concomitant]
  4. OTHER UNSPECIFIED MEDS [Concomitant]

REACTIONS (2)
  - ARTHRALGIA [None]
  - MYALGIA [None]
